FAERS Safety Report 7460500-7 (Version None)
Quarter: 2011Q2

REPORT INFORMATION
  Report Type: 
  Country: None (occurrence: None)
  Receive Date: 20110505
  Receipt Date: 20110426
  Transmission Date: 20111010
  Serious: Yes (Hospitalization)
  Sender: FDA-Public Use
  Company Number: CN-MERCK-1104CHN00042

PATIENT
  Age: 48 Year
  Sex: Female
  Weight: 60 kg

DRUGS (5)
  1. SINGULAIR [Suspect]
     Indication: ASTHMA
     Route: 048
     Dates: start: 20090101
  2. FLUTICASONE PROPIONATE AND SALMETEROL XINAFOATE [Concomitant]
     Indication: ASTHMA
     Route: 055
     Dates: start: 20090101
  3. DESOGESTREL AND ETHINYL ESTRADIOL [Concomitant]
     Route: 048
     Dates: start: 20110409, end: 20110413
  4. DESOGESTREL AND ETHINYL ESTRADIOL [Concomitant]
     Indication: DYSFUNCTIONAL UTERINE BLEEDING
     Route: 048
     Dates: start: 20110402, end: 20110403
  5. DESOGESTREL AND ETHINYL ESTRADIOL [Concomitant]
     Route: 048
     Dates: start: 20110404, end: 20110408

REACTIONS (4)
  - PELVIC VENOUS THROMBOSIS [None]
  - ANAEMIA [None]
  - PULMONARY EMBOLISM [None]
  - DEEP VEIN THROMBOSIS [None]
